FAERS Safety Report 15023358 (Version 1)
Quarter: 2018Q2

REPORT INFORMATION
  Report Type: Report from Study
  Country: US (occurrence: US)
  Receive Date: 20180618
  Receipt Date: 20180618
  Transmission Date: 20180711
  Serious: Yes (Other)
  Sender: FDA-Public Use
  Company Number: PHEH2018US022356

PATIENT
  Sex: Female
  Weight: 11.34 kg

DRUGS (1)
  1. RIBAVIRIN. [Suspect]
     Active Substance: RIBAVIRIN
     Indication: PRODUCT USED FOR UNKNOWN INDICATION
     Dosage: FETAL DRUG EXPOSURE VIA FATHER
     Route: 050

REACTIONS (5)
  - Developmental hip dysplasia [Unknown]
  - Rash [Unknown]
  - Cough [Unknown]
  - Respiratory disorder [Unknown]
  - Exposure via father [Unknown]
